FAERS Safety Report 25844951 (Version 3)
Quarter: 2025Q4

REPORT INFORMATION
  Report Type: Spontaneous
  Country: JP (occurrence: JP)
  Receive Date: 20250925
  Receipt Date: 20251010
  Transmission Date: 20260117
  Serious: Yes (Hospitalization, Other)
  Sender: IDORSIA PHARMACEUTICALS
  Company Number: JP-IDORSIA-011828-2025-JP

PATIENT
  Age: 75 Year
  Sex: Female

DRUGS (8)
  1. QUVIVIQ [Suspect]
     Active Substance: DARIDOREXANT
     Indication: Insomnia
     Dosage: 11 DOSAGE FORM
     Route: 048
     Dates: start: 20250915, end: 20250915
  2. AMLODIPINE BESYLATE\AZILSARTAN [Concomitant]
     Active Substance: AMLODIPINE BESYLATE\AZILSARTAN
  3. PREDONINE [Concomitant]
     Active Substance: PREDNISOLONE
  4. ELOBIXIBAT [Concomitant]
     Active Substance: ELOBIXIBAT
  5. SENNOSIDES [Concomitant]
     Active Substance: SENNOSIDES
  6. LANSOPRAZOLE [Concomitant]
     Active Substance: LANSOPRAZOLE
  7. IGURATIMOD [Concomitant]
     Active Substance: IGURATIMOD
  8. ELDECALCITOL [Concomitant]
     Active Substance: ELDECALCITOL

REACTIONS (1)
  - Intentional overdose [Recovered/Resolved]

NARRATIVE: CASE EVENT DATE: 20250915
